FAERS Safety Report 9204891 (Version 1)
Quarter: 2013Q2

REPORT INFORMATION
  Report Type: Other
  Country: IT (occurrence: IT)
  Receive Date: 20130402
  Receipt Date: 20130402
  Transmission Date: 20140414
  Serious: Yes (Other)
  Sender: FDA-Public Use
  Company Number: IT-BRISTOL-MYERS SQUIBB COMPANY-18696054

PATIENT
  Age: 48 Year
  Sex: Male

DRUGS (3)
  1. LEVODOPA + CARBIDOPA [Suspect]
     Indication: PARKINSON^S DISEASE
     Dosage: 1 DF:1000/250MG/D
  2. LEVODOPA [Suspect]
     Indication: PARKINSON^S DISEASE
     Dosage: DOSE REDUCED TO 600MG/D
  3. PERGOLIDE [Suspect]
     Indication: PARKINSON^S DISEASE

REACTIONS (3)
  - Paraphilia [Recovered/Resolved]
  - Pathological gambling [Recovered/Resolved]
  - Dopamine dysregulation syndrome [Recovered/Resolved]
